FAERS Safety Report 8344668-6 (Version None)
Quarter: 2012Q2

REPORT INFORMATION
  Report Type: 
  Country: None (occurrence: None)
  Receive Date: 20120508
  Receipt Date: 20120430
  Transmission Date: 20120825
  Serious: Yes (Other)
  Sender: FDA-Public Use
  Company Number: US-JNJFOC-20100804666

PATIENT
  Sex: Female

DRUGS (4)
  1. LEVAQUIN [Suspect]
     Indication: BRONCHITIS
     Route: 048
     Dates: start: 20081126, end: 20081205
  2. PREDNISONE TAB [Suspect]
     Indication: ARTHROPATHY
     Route: 048
  3. LEVAQUIN [Suspect]
     Indication: ASTHMA
     Route: 048
     Dates: start: 20081126, end: 20081205
  4. PREDNISONE TAB [Suspect]
     Indication: RESPIRATORY DISORDER
     Route: 048

REACTIONS (2)
  - ROTATOR CUFF SYNDROME [None]
  - JOINT INJURY [None]
